FAERS Safety Report 14383198 (Version 1)
Quarter: 2018Q1

REPORT INFORMATION
  Report Type: Report from Study
  Country: None (occurrence: US)
  Receive Date: 20180115
  Receipt Date: 20180115
  Transmission Date: 20180509
  Serious: Yes (Hospitalization)
  Sender: FDA-Public Use
  Company Number: US-ABBVIE-18K-163-2219920-00

PATIENT
  Age: 44 Year
  Sex: Male

DRUGS (1)
  1. HUMIRA [Suspect]
     Active Substance: ADALIMUMAB
     Indication: PSORIASIS
     Route: 058
     Dates: start: 20170627

REACTIONS (3)
  - Loss of consciousness [Recovering/Resolving]
  - Hypertension [Recovering/Resolving]
  - Insomnia [Recovering/Resolving]

NARRATIVE: CASE EVENT DATE: 20180106
